FAERS Safety Report 15340218 (Version 2)
Quarter: 2018Q4

REPORT INFORMATION
  Report Type: Report from Study
  Country: None (occurrence: KR)
  Receive Date: 20180831
  Receipt Date: 20181226
  Transmission Date: 20190204
  Serious: Yes (Hospitalization)
  Sender: FDA-Public Use
  Company Number: KR-ABBVIE-18K-090-2471820-00

PATIENT
  Age: 50 Year
  Sex: Male
  Weight: 59 kg

DRUGS (9)
  1. CETIZAL [Concomitant]
     Indication: PROPHYLAXIS
     Route: 048
     Dates: start: 20180126, end: 201806
  2. UREA C [Concomitant]
     Indication: PSORIASIS
     Route: 061
     Dates: start: 20180608, end: 201806
  3. HUMIRA [Suspect]
     Active Substance: ADALIMUMAB
     Indication: PSORIATIC ARTHROPATHY
     Route: 058
     Dates: start: 20180516, end: 20180516
  4. HUMIRA [Suspect]
     Active Substance: ADALIMUMAB
     Route: 058
     Dates: start: 20180819
  5. HUMIRA [Suspect]
     Active Substance: ADALIMUMAB
     Indication: PSORIASIS
     Route: 058
     Dates: start: 20180523, end: 20180715
  6. BROPIUM [Concomitant]
     Indication: MUSCULOSKELETAL DISORDER PROPHYLAXIS
     Route: 042
     Dates: start: 20180919, end: 20180919
  7. TOPISOL MILK LOTION [Concomitant]
     Indication: PSORIASIS
     Route: 061
     Dates: start: 20180727
  8. ADIPAM [Concomitant]
     Indication: PROPHYLAXIS
     Route: 048
     Dates: start: 20180126
  9. EBASTEL [Concomitant]
     Active Substance: EBASTINE
     Indication: PROPHYLAXIS
     Route: 048
     Dates: start: 20180727

REACTIONS (1)
  - Small intestinal perforation [Recovered/Resolved]

NARRATIVE: CASE EVENT DATE: 20180730
